FAERS Safety Report 11639835 (Version 3)
Quarter: 2016Q2

REPORT INFORMATION
  Report Type: Report from Study
  Country: US (occurrence: US)
  Receive Date: 20151019
  Receipt Date: 20160404
  Transmission Date: 20160815
  Serious: No
  Sender: FDA-Public Use
  Company Number: PHEH2015US001204

PATIENT
  Age: 17 Year
  Sex: Female
  Weight: 67 kg

DRUGS (3)
  1. ILARIS [Suspect]
     Active Substance: CANAKINUMAB
     Indication: JUVENILE IDIOPATHIC ARTHRITIS
     Dosage: 180 MG, ONCE A MONTH
     Route: 058
     Dates: start: 20140528
  2. IBUPROFEN. [Concomitant]
     Active Substance: IBUPROFEN
     Indication: PAIN
     Dosage: 2 DF, PRN
     Route: 048
     Dates: start: 20140528
  3. ILARIS [Suspect]
     Active Substance: CANAKINUMAB
     Indication: RHEUMATOID ARTHRITIS
     Dosage: 180 MG, ONCE A MONTH
     Route: 058
     Dates: start: 20151110

REACTIONS (3)
  - Inappropriate schedule of drug administration [Unknown]
  - Incorrect dose administered [Not Recovered/Not Resolved]
  - Malaise [Unknown]

NARRATIVE: CASE EVENT DATE: 20150212
